FAERS Safety Report 9236988 (Version 2)
Quarter: 2013Q2

REPORT INFORMATION
  Report Type: Spontaneous
  Country: US (occurrence: US)
  Receive Date: 20130417
  Receipt Date: 20130507
  Transmission Date: 20140414
  Serious: Yes (Hospitalization, Other)
  Sender: FDA-Public Use
  Company Number: US-MERCK-1304USA007365

PATIENT
  Sex: Female

DRUGS (5)
  1. SAPHRIS [Suspect]
     Indication: BIPOLAR DISORDER
     Dosage: 5 MG, UNK
     Route: 060
     Dates: start: 201301, end: 2013
  2. SAPHRIS [Suspect]
     Dosage: 5MG TABLET AND HALF OF ANOTHER 5MG TABLET
     Route: 060
     Dates: start: 2013, end: 2013
  3. SAPHRIS [Suspect]
     Dosage: 10 MG, UNK
     Route: 060
     Dates: start: 201304
  4. WARFARIN [Concomitant]
  5. DEPAKOTE [Concomitant]

REACTIONS (7)
  - Suicidal behaviour [Unknown]
  - Abnormal behaviour [Unknown]
  - Pulmonary embolism [Unknown]
  - Fatigue [Recovering/Resolving]
  - Syncope [Unknown]
  - Therapeutic response decreased [Unknown]
  - Wrong technique in drug usage process [Unknown]
